FAERS Safety Report 4347794-1 (Version None)
Quarter: 2004Q2

REPORT INFORMATION
  Report Type: 
  Country: None (occurrence: None)
  Receive Date: 20040422
  Receipt Date: 20030828
  Transmission Date: 20050107
  Serious: Yes (Hospitalization)
  Sender: FDA-Public Use
  Company Number: 202259

PATIENT
  Age: 13 Year
  Sex: Female

DRUGS (2)
  1. RITUXAN [Suspect]
     Indication: ANAEMIA HAEMOLYTIC AUTOIMMUNE
     Dosage: 375 MG/M2, X4, INTRAVENOUS
     Route: 042
     Dates: end: 20030820
  2. PREDNISONE [Concomitant]

REACTIONS (2)
  - PULMONARY HAEMORRHAGE [None]
  - VASCULITIS [None]
